FAERS Safety Report 4286269-5 (Version None)
Quarter: 2004Q1

REPORT INFORMATION
  Report Type: 
  Country: None (occurrence: None)
  Receive Date: 20040205
  Receipt Date: 20040205
  Transmission Date: 20041129
  Serious: Yes (Disabling)
  Sender: FDA-Public Use
  Company Number: None

PATIENT
  Age: 52 Year
  Sex: Female
  Weight: 72.5755 kg

DRUGS (2)
  1. METRONIDAZOLE [Suspect]
     Indication: DIVERTICULITIS
     Dosage: TAKE 1 4X PER DAY
     Dates: start: 20030905, end: 20031025
  2. CIPRO [Concomitant]

REACTIONS (1)
  - NEUROPATHY PERIPHERAL [None]
